FAERS Safety Report 9701984 (Version 1)
Quarter: 2013Q4

REPORT INFORMATION
  Report Type: Spontaneous
  Country: DE (occurrence: DE)
  Receive Date: 20131121
  Receipt Date: 20131121
  Transmission Date: 20140711
  Serious: Yes (Other)
  Sender: FDA-Public Use
  Company Number: DE-SA-2013SA106456

PATIENT
  Age: 22 Year
  Sex: Female
  Weight: 58 kg

DRUGS (9)
  1. PREDNISOLON [Suspect]
     Indication: IMMUNE THROMBOCYTOPENIC PURPURA
     Route: 048
  2. FUROSEMID [Suspect]
     Indication: GLOMERULONEPHRITIS
     Dosage: 40 TO 80 MG DAILY AS NEEDED
     Route: 048
  3. FLUVASTATIN [Suspect]
     Indication: HYPERCHOLESTEROLAEMIA
     Route: 048
  4. RAMIPRIL [Suspect]
     Indication: GLOMERULONEPHRITIS
     Route: 048
  5. PROGRAF [Suspect]
     Indication: NEPHROTIC SYNDROME
     Route: 048
  6. TORASEMIDE [Suspect]
     Indication: GLOMERULONEPHRITIS
     Route: 048
  7. OMEPRAZOLE [Concomitant]
     Indication: GASTRITIS PROPHYLAXIS
     Route: 048
  8. IDEOS [Concomitant]
     Indication: OSTEOPOROSIS PROPHYLAXIS
     Dosage: 500 MG/10 MCG / BID / 100 /20 MCG
     Route: 048
  9. FOLIC ACID [Concomitant]
     Indication: PROPHYLAXIS OF NEURAL TUBE DEFECT
     Route: 048

REACTIONS (2)
  - Premature rupture of membranes [Unknown]
  - Exposure during pregnancy [Unknown]
